FAERS Safety Report 7658800-0 (Version None)
Quarter: 2011Q3

REPORT INFORMATION
  Report Type: 
  Country: None (occurrence: None)
  Receive Date: 20110805
  Receipt Date: 20110728
  Transmission Date: 20111222
  Serious: Yes (Other)
  Sender: FDA-Public Use
  Company Number: FR-EISAI INC-E3810-04763-SPO-FR

PATIENT
  Sex: Female
  Weight: 57 kg

DRUGS (1)
  1. RABEPRAZOLE SODIUM [Suspect]
     Indication: ABDOMINAL PAIN UPPER
     Route: 048
     Dates: start: 20110603, end: 20110606

REACTIONS (5)
  - ABDOMINAL PAIN [None]
  - HEADACHE [None]
  - THROMBOCYTOPENIA [None]
  - PYREXIA [None]
  - ABDOMINAL TENDERNESS [None]
